FAERS Safety Report 9637435 (Version 2)
Quarter: 2013Q4

REPORT INFORMATION
  Report Type: Spontaneous
  Country: US (occurrence: None)
  Receive Date: 20131018
  Receipt Date: 20131025
  Transmission Date: 20140711
  Serious: Yes (Hospitalization)
  Sender: FDA-Public Use
  Company Number: 2013-1658

PATIENT
  Age: 75 Year
  Sex: Male

DRUGS (7)
  1. KYPROLIS [Suspect]
     Indication: PLASMA CELL MYELOMA
     Dosage: 2 IN 1 WK
     Route: 042
     Dates: start: 20130718
  2. REVLIMID (LENALIDOMIDE) (LENALIDOMIDE) [Concomitant]
  3. BACTRIM (SULFAMETHOXAZOLE, TRIMETHOPRIM) (SULFAMETHOXAZOLE, TRIMETHOPRIM) [Concomitant]
  4. RAPAFLO (SILODOSIN) (SILODOSIN) [Concomitant]
  5. ACYCLOVIR (ACICLOVIR) (ACICLOVIR) [Concomitant]
  6. DEXILANT (DEXLANSOPRAZOLE) (DEXLANSOPRAZOLE) [Concomitant]
  7. DEXAMETHASONE (DEXAMETHASONE) (DEXAMETHASONE) [Concomitant]

REACTIONS (1)
  - Thrombosis [None]
